APPROVED DRUG PRODUCT: GEOCILLIN
Active Ingredient: CARBENICILLIN INDANYL SODIUM
Strength: EQ 382MG BASE
Dosage Form/Route: TABLET;ORAL
Application: N050435 | Product #001
Applicant: PFIZER LABORATORIES DIV PFIZER INC
Approved: Approved Prior to Jan 1, 1982 | RLD: No | RS: No | Type: DISCN